FAERS Safety Report 6391891-6 (Version None)
Quarter: 2009Q4

REPORT INFORMATION
  Report Type: 
  Country: None (occurrence: None)
  Receive Date: 20091007
  Receipt Date: 20090925
  Transmission Date: 20100525
  Serious: Yes (Other)
  Sender: FDA-Public Use
  Company Number: US-JNJFOC-20090908150

PATIENT
  Age: 55 Year
  Sex: Female

DRUGS (1)
  1. TAPENTADOL HYDROCHLORIDE [Suspect]
     Indication: PAIN MANAGEMENT
     Dosage: 50MG EVERY 4-6 HOURS
     Route: 048

REACTIONS (3)
  - ANXIETY [None]
  - CHEST DISCOMFORT [None]
  - PALPITATIONS [None]
